FAERS Safety Report 19514366 (Version 1)
Quarter: 2021Q3

REPORT INFORMATION
  Report Type: Spontaneous
  Country: QA (occurrence: QA)
  Receive Date: 20210709
  Receipt Date: 20210709
  Transmission Date: 20211014
  Serious: Yes (Death, Other)
  Sender: FDA-Public Use
  Company Number: QA-AMGEN-QATSP2021100700

PATIENT

DRUGS (2)
  1. CINACALCET HCL [Suspect]
     Active Substance: CINACALCET HYDROCHLORIDE
     Indication: PRODUCT USED FOR UNKNOWN INDICATION
     Dosage: UNK
     Route: 065
  2. DARBEPOETIN ALFA [Suspect]
     Active Substance: DARBEPOETIN ALFA
     Indication: PRODUCT USED FOR UNKNOWN INDICATION
     Dosage: UNK
     Route: 065

REACTIONS (7)
  - Cardiovascular disorder [Fatal]
  - Neoplasm malignant [Fatal]
  - Sepsis [Fatal]
  - Death [Fatal]
  - Fluid overload [Fatal]
  - Pneumonia [Fatal]
  - Cerebrovascular accident [Fatal]
